FAERS Safety Report 4703762-9 (Version None)
Quarter: 2005Q2

REPORT INFORMATION
  Report Type: 
  Country: None (occurrence: None)
  Receive Date: 20050628
  Receipt Date: 20050620
  Transmission Date: 20051028
  Serious: Yes (Hospitalization)
  Sender: FDA-Public Use
  Company Number: STA-AE-05-020

PATIENT
  Age: 33 Day
  Sex: Female

DRUGS (1)
  1. FUROSEMIDE [Suspect]

REACTIONS (12)
  - ABDOMINAL DISTENSION [None]
  - CALCINOSIS [None]
  - HYDRONEPHROSIS [None]
  - HYPERCALCIURIA [None]
  - JAUNDICE [None]
  - NEPHROLITHIASIS [None]
  - PELVI-URETERIC OBSTRUCTION [None]
  - PERINEPHRIC COLLECTION [None]
  - URETERAL DISORDER [None]
  - URETERIC DILATATION [None]
  - URINE CALCIUM/CREATININE RATIO INCREASED [None]
  - URINOMA [None]
